FAERS Safety Report 14068140 (Version 1)
Quarter: 2017Q4

REPORT INFORMATION
  Report Type: Report from Study
  Country: US (occurrence: US)
  Receive Date: 20171010
  Receipt Date: 20171010
  Transmission Date: 20180321
  Serious: Yes (Other)
  Sender: FDA-Public Use
  Company Number: US-TEVA-812718USA

PATIENT
  Age: 26 Year
  Sex: Male

DRUGS (1)
  1. LOPERAMIDE [Suspect]
     Active Substance: LOPERAMIDE
     Dosage: 500MG
     Route: 048

REACTIONS (7)
  - Acute kidney injury [Unknown]
  - Agitation [Unknown]
  - Bradycardia [Unknown]
  - Seizure [Unknown]
  - Ventricular tachycardia [Unknown]
  - Electrolyte imbalance [Unknown]
  - Irritability [Unknown]
